FAERS Safety Report 20476490 (Version 9)
Quarter: 2023Q1

REPORT INFORMATION
  Report Type: Spontaneous
  Country: US (occurrence: US)
  Receive Date: 20220215
  Receipt Date: 20230317
  Transmission Date: 20230417
  Serious: Yes (Hospitalization, Other)
  Sender: FDA-Public Use
  Company Number: US-PARI RESPIRATORY EQUIPMENT, INC.-2022PAR00008

PATIENT
  Age: 4 Year
  Sex: Male
  Weight: 15.918 kg

DRUGS (10)
  1. KITABIS PAK [Suspect]
     Active Substance: TOBRAMYCIN
     Indication: Cystic fibrosis
     Dosage: 300 MG/5 ML (1 AMPULE) VIA NEBULIZER, 2X/DAY FOR 28 DAYS ON AND 28 DAYS OFF, THEN REPEAT
  2. KITABIS PAK [Suspect]
     Active Substance: TOBRAMYCIN
     Indication: Illness
  3. PULMOZYME [Concomitant]
     Active Substance: DORNASE ALFA
     Dosage: 2.5 ML INTO THE LUNGS, EVERY 12 HOURS
  4. ALBUTEROL SULFATE [Concomitant]
     Active Substance: ALBUTEROL SULFATE
  5. ALBUTEROL SULFATE [Concomitant]
     Active Substance: ALBUTEROL SULFATE
  6. VITAMINS [Concomitant]
     Active Substance: VITAMINS
  7. FLOVENT HFA [Concomitant]
     Active Substance: FLUTICASONE PROPIONATE
     Dosage: 2 PUFFS INTO THE LUNGS, 2X/DAY
  8. ALBUTEROL NEBS [Concomitant]
     Dosage: 3 ML, EVERY 4 HOURS
  9. MIRALAX [Concomitant]
     Active Substance: POLYETHYLENE GLYCOL 3350
  10. SODIUM CHLORATE NEB [Concomitant]

REACTIONS (13)
  - Pneumonia [Unknown]
  - Infective pulmonary exacerbation of cystic fibrosis [Recovering/Resolving]
  - Failure to thrive [Unknown]
  - Staphylococcal infection [Not Recovered/Not Resolved]
  - Oxygen therapy [Unknown]
  - Oxygen saturation decreased [Recovered/Resolved]
  - COVID-19 [Recovered/Resolved]
  - Constipation [Recovering/Resolving]
  - Hypophagia [Recovering/Resolving]
  - Weight decreased [Recovering/Resolving]
  - Blood glucose increased [Recovered/Resolved]
  - Illness [Unknown]
  - Off label use [Not Recovered/Not Resolved]

NARRATIVE: CASE EVENT DATE: 20211001
